FAERS Safety Report 11097365 (Version 2)
Quarter: 2015Q2

REPORT INFORMATION
  Report Type: Report from Study
  Country: US (occurrence: US)
  Receive Date: 20150507
  Receipt Date: 20150529
  Transmission Date: 20150821
  Serious: Yes (Hospitalization)
  Sender: FDA-Public Use
  Company Number: US-ACTELION-A-US2013-91047

PATIENT
  Age: 81 Year
  Sex: Female

DRUGS (3)
  1. TRACLEER [Suspect]
     Active Substance: BOSENTAN\BOSENTAN MONOHYDRATE
     Indication: PULMONARY ARTERIAL HYPERTENSION
     Dosage: UNK
     Route: 048
  2. LASIX [Concomitant]
     Active Substance: FUROSEMIDE
  3. COUMADIN [Concomitant]
     Active Substance: WARFARIN SODIUM

REACTIONS (15)
  - Dyspnoea [Unknown]
  - Feeling abnormal [Unknown]
  - Dysuria [Not Recovered/Not Resolved]
  - Renal disorder [Unknown]
  - Fluid retention [Unknown]
  - Decreased appetite [Unknown]
  - Nephrolithiasis [Unknown]
  - Oedema [Unknown]
  - Urinary tract infection [Unknown]
  - Viral infection [Unknown]
  - Fatigue [Unknown]
  - Oedema peripheral [Unknown]
  - Rectal prolapse [Unknown]
  - Dizziness [Unknown]
  - Pain [Unknown]
